FAERS Safety Report 5147200-3 (Version None)
Quarter: 2006Q4

REPORT INFORMATION
  Report Type: 
  Country: None (occurrence: None)
  Receive Date: 20061103
  Receipt Date: 20061019
  Transmission Date: 20070319
  Serious: Yes (Hospitalization, Disabling)
  Sender: FDA-Public Use
  Company Number: 2006EU002336

PATIENT
  Age: 16 Year
  Sex: Female
  Weight: 43 kg

DRUGS (6)
  1. TACROLIMUS CAPSULES (TACROLIMUS) CAPSULE [Suspect]
     Indication: RENAL TRANSPLANT
     Dosage: 2 MG, BID, ORAL
     Route: 048
     Dates: start: 20060301, end: 20060810
  2. AZATHIOPRINE [Concomitant]
  3. METHYLPREDNISOLONE [Concomitant]
  4. SUCRALFATE [Concomitant]
  5. PREDNISOLONE [Concomitant]
  6. CIPROFLOXACIN [Concomitant]

REACTIONS (3)
  - C-REACTIVE PROTEIN INCREASED [None]
  - GALLBLADDER ENLARGEMENT [None]
  - PYREXIA [None]
